FAERS Safety Report 23675258 (Version 1)
Quarter: 2024Q1

REPORT INFORMATION
  Report Type: Report from Study
  Country: US (occurrence: US)
  Receive Date: 20240327
  Receipt Date: 20240327
  Transmission Date: 20240409
  Serious: Yes (Hospitalization, Other)
  Sender: FDA-Public Use
  Company Number: US-SA-SAC20230823001013

PATIENT
  Age: 34 Year
  Sex: Male

DRUGS (4)
  1. EFTRENONACOG ALFA [Suspect]
     Active Substance: EFTRENONACOG ALFA
     Indication: Factor IX deficiency
     Dosage: 10,500 UNITS (+/-10%), QW
     Route: 042
     Dates: start: 20150204
  2. EFTRENONACOG ALFA [Suspect]
     Active Substance: EFTRENONACOG ALFA
     Indication: Factor IX deficiency
     Dosage: 10,500 UNITS (+/-10%), QW
     Route: 042
     Dates: start: 20150204
  3. EFTRENONACOG ALFA [Suspect]
     Active Substance: EFTRENONACOG ALFA
     Dosage: 5500 U
     Route: 042
  4. EFTRENONACOG ALFA [Suspect]
     Active Substance: EFTRENONACOG ALFA
     Dosage: 5500 U
     Route: 042

REACTIONS (6)
  - Haemarthrosis [Recovering/Resolving]
  - Product dose omission issue [Recovering/Resolving]
  - Abdominal pain upper [Unknown]
  - Haemorrhage [Unknown]
  - Spontaneous haemorrhage [Recovered/Resolved]
  - Arthropathy [Unknown]

NARRATIVE: CASE EVENT DATE: 20230101
